FAERS Safety Report 7029621-7 (Version None)
Quarter: 2010Q4

REPORT INFORMATION
  Report Type: 
  Country: None (occurrence: None)
  Receive Date: 20101005
  Receipt Date: 20100921
  Transmission Date: 20110411
  Serious: Yes (Life-Threatening)
  Sender: FDA-Public Use
  Company Number: JP-MERCK-1008USA04085

PATIENT
  Age: 62 Year
  Sex: Male

DRUGS (5)
  1. ZETIA [Suspect]
     Indication: HYPERLIPIDAEMIA
     Route: 048
     Dates: start: 20090801, end: 20100803
  2. BEZATOL SR [Suspect]
     Route: 048
     Dates: end: 20100803
  3. NIFEDIPINE [Concomitant]
     Route: 065
  4. VALSARTAN [Concomitant]
     Route: 065
  5. ENALAPRIL MALEATE [Concomitant]
     Route: 048

REACTIONS (2)
  - RENAL FAILURE ACUTE [None]
  - RHABDOMYOLYSIS [None]
